FAERS Safety Report 7657557-7 (Version None)
Quarter: 2011Q3

REPORT INFORMATION
  Report Type: 
  Country: None (occurrence: None)
  Receive Date: 20110804
  Receipt Date: 20110728
  Transmission Date: 20111222
  Serious: Yes (Other)
  Sender: FDA-Public Use
  Company Number: DE-AMGEN-DEUSP2011032779

PATIENT
  Age: 42 Year
  Sex: Female

DRUGS (2)
  1. PROLIA [Suspect]
     Indication: OSTEOPOROSIS POSTMENOPAUSAL
     Dosage: UNK
     Dates: start: 20110501
  2. XELODA [Concomitant]
     Dosage: UNK
     Dates: start: 20090401

REACTIONS (1)
  - NEOPLASM MALIGNANT [None]
